FAERS Safety Report 13784036 (Version 3)
Quarter: 2017Q4

REPORT INFORMATION
  Report Type: Spontaneous
  Country: JP (occurrence: JP)
  Receive Date: 20170724
  Receipt Date: 20171005
  Transmission Date: 20180320
  Serious: Yes (Other)
  Sender: FDA-Public Use
  Company Number: JP-PFIZER INC-2017213325

PATIENT
  Age: 83 Year
  Sex: Female
  Weight: 46 kg

DRUGS (15)
  1. RHEUMATREX [Suspect]
     Active Substance: METHOTREXATE SODIUM
     Indication: RHEUMATOID ARTHRITIS
     Dosage: 4 MG, WEEKLY
     Route: 048
     Dates: start: 20170413, end: 2017
  2. REBAMIPIDE [Suspect]
     Active Substance: REBAMIPIDE
     Dosage: 1 DF, 2X/DAY AFTER MEAL
     Route: 048
     Dates: start: 20170413
  3. CLARITHROMYCIN. [Concomitant]
     Active Substance: CLARITHROMYCIN
     Dosage: 400 MG, DAILY
     Route: 048
     Dates: start: 20170406
  4. AMBROXOL HYDROCHLORIDE [Concomitant]
     Active Substance: AMBROXOL HYDROCHLORIDE
     Dosage: 30 MG, DAILY
     Route: 048
     Dates: start: 20170406
  5. DEPAS [Concomitant]
     Active Substance: ETIZOLAM
     Dosage: 1 MG, DAILY
     Route: 048
     Dates: start: 20170406
  6. LORCAM /01449001/ [Concomitant]
     Dosage: 3 DF, UNK
     Dates: start: 20170509
  7. REBAMIPIDE [Suspect]
     Active Substance: REBAMIPIDE
     Dosage: 1 DF, 3X/DAY AFTER EACH MEAL
     Route: 048
     Dates: start: 20170509, end: 20170516
  8. LANSOPRAZOLE. [Concomitant]
     Active Substance: LANSOPRAZOLE
     Dosage: 15 MG, DAILY
     Route: 048
     Dates: start: 20170406
  9. MICAMLO [Concomitant]
     Active Substance: AMLODIPINE BESYLATE\TELMISARTAN
     Dosage: UNK
     Route: 048
     Dates: start: 20170406
  10. CELECOX [Suspect]
     Active Substance: CELECOXIB
     Indication: ARTHRALGIA
     Dosage: 1 DF, 2X/DAY
     Route: 048
     Dates: start: 20170217
  11. PRAVASTATIN NA [Concomitant]
     Active Substance: PRAVASTATIN SODIUM
     Dosage: 5 MG, DAILY
     Route: 048
     Dates: start: 20170406
  12. SYMBICORT [Concomitant]
     Active Substance: BUDESONIDE\FORMOTEROL FUMARATE DIHYDRATE
     Dosage: 2 TURBUHALERS
     Dates: start: 20170406
  13. RHEUMATREX [Suspect]
     Active Substance: METHOTREXATE SODIUM
     Dosage: 6 MG, WEEKLY
     Route: 048
     Dates: start: 20170509, end: 20170512
  14. BAYASPIRIN [Concomitant]
     Active Substance: ASPIRIN
     Dosage: 100 MG, DAILY
     Route: 048
     Dates: start: 20170406
  15. MUCOBULIN [Concomitant]
     Active Substance: AMBROXOL HYDROCHLORIDE
     Dosage: 30 MG, DAILY
     Route: 048
     Dates: start: 20170406

REACTIONS (1)
  - Glossitis [Recovered/Resolved]

NARRATIVE: CASE EVENT DATE: 201705
